FAERS Safety Report 6727331-4 (Version None)
Quarter: 2010Q2

REPORT INFORMATION
  Report Type: 
  Country: None (occurrence: None)
  Receive Date: 20100517
  Receipt Date: 20100513
  Transmission Date: 20101027
  Serious: Yes (Death, Hospitalization, Other)
  Sender: FDA-Public Use
  Company Number: US-JNJFOC-20100403164

PATIENT
  Sex: Male
  Weight: 36.29 kg

DRUGS (6)
  1. CONCERTA [Suspect]
     Indication: ATTENTION DEFICIT/HYPERACTIVITY DISORDER
     Route: 048
  2. CONCERTA [Suspect]
     Route: 048
  3. CONCERTA [Suspect]
     Dosage: TWO TABLETS IN THE MORNING
     Route: 048
  4. CONCERTA [Suspect]
     Dosage: TWO TABLETS IN THE MORNING
     Route: 048
  5. CONCERTA [Suspect]
     Route: 048
  6. CLONIDINE [Concomitant]
     Indication: SOMNOLENCE
     Dosage: BEFORE BED
     Route: 048

REACTIONS (2)
  - ASPHYXIA [None]
  - COMPLETED SUICIDE [None]
